FAERS Safety Report 10154706 (Version 1)
Quarter: 2014Q2

REPORT INFORMATION
  Report Type: Spontaneous
  Country: US (occurrence: US)
  Receive Date: 20140506
  Receipt Date: 20140506
  Transmission Date: 20141212
  Serious: No
  Sender: FDA-Public Use
  Company Number: US-BAYER-2014-065524

PATIENT
  Sex: Female

DRUGS (1)
  1. GIANVI [Suspect]
     Indication: CONTRACEPTION
     Route: 048

REACTIONS (1)
  - Nausea [None]
